FAERS Safety Report 4539663-9 (Version None)
Quarter: 2004Q4

REPORT INFORMATION
  Report Type: 
  Country: None (occurrence: None)
  Receive Date: 20041228
  Receipt Date: 20041220
  Transmission Date: 20050328
  Serious: Yes (Disabling)
  Sender: FDA-Public Use
  Company Number: US-MERCK-0412USA02516

PATIENT
  Age: 70 Year
  Sex: Female

DRUGS (4)
  1. MEVACOR [Suspect]
     Indication: BLOOD CHOLESTEROL INCREASED
     Route: 048
     Dates: start: 19940101
  2. MEVACOR [Suspect]
     Route: 048
     Dates: start: 20010101, end: 20010101
  3. PROAMATINE [Concomitant]
     Route: 065
  4. FLORINEF [Concomitant]
     Route: 065

REACTIONS (2)
  - BLOOD PRESSURE DECREASED [None]
  - TREATMENT NONCOMPLIANCE [None]
